FAERS Safety Report 6487190-4 (Version None)
Quarter: 2009Q4

REPORT INFORMATION
  Report Type: 
  Country: None (occurrence: None)
  Receive Date: 20091210
  Receipt Date: 20091201
  Transmission Date: 20100525
  Serious: Yes (Death)
  Sender: FDA-Public Use
  Company Number: DE-ELI_LILLY_AND_COMPANY-DE200911006389

PATIENT
  Sex: Female
  Weight: 65 kg

DRUGS (6)
  1. DULOXETINE HYDROCHLORIDE [Suspect]
     Indication: DIABETIC NEUROPATHY
     Dosage: 60 MG, UNK
     Route: 048
     Dates: start: 20090313, end: 20090801
  2. MELPERON [Concomitant]
     Indication: AGITATION
     Dosage: 25 MG, UNK
     Dates: start: 20080101, end: 20090801
  3. ZOPICLON [Concomitant]
     Indication: AGITATION
     Dosage: 7.5 MG, UNK
     Dates: start: 20080101, end: 20090801
  4. RAMIPRIL [Concomitant]
     Indication: HYPERTENSION
     Dosage: 5 MG, UNK
     Dates: start: 20040101, end: 20090801
  5. TRAMADOL HCL [Concomitant]
  6. METOPROLOL [Concomitant]

REACTIONS (1)
  - MYOCARDIAL INFARCTION [None]
